FAERS Safety Report 13039643 (Version 2)
Quarter: 2016Q4

REPORT INFORMATION
  Report Type: Spontaneous
  Country: US (occurrence: US)
  Receive Date: 20161219
  Receipt Date: 20161223
  Transmission Date: 20170207
  Serious: Yes (Hospitalization)
  Sender: FDA-Public Use
  Company Number: US-HORIZON-RAV-0252-2016

PATIENT
  Age: 32 Year
  Sex: Male

DRUGS (9)
  1. ZANTAC [Concomitant]
     Active Substance: RANITIDINE HYDROCHLORIDE
     Dosage: 150 MG BID
  2. ZYPREXXA [Concomitant]
     Dosage: 5 MG EVERY MORNING, 15 MG EVERY EVENING
  3. CITRULLINE [Concomitant]
     Active Substance: CITRULLINE
     Dosage: 1 G TID
  4. ATIVAN [Concomitant]
     Active Substance: LORAZEPAM
     Indication: RESTLESSNESS
     Dosage: 1 MG IN THE MORNING AND AS NEEDED IN THE AFTERNOON
  5. RAVICTI [Suspect]
     Active Substance: GLYCEROL PHENYLBUTYRATE
     Indication: CARBAMOYL PHOSPHATE SYNTHETASE DEFICIENCY
     Dosage: 3 ML TID
     Dates: start: 20150820
  6. PHENOBARBITAL. [Concomitant]
     Active Substance: PHENOBARBITAL
     Dosage: 2 DF (EACH 64.8 MG) BID
  7. CANITOR [Concomitant]
     Dosage: 12 CC TIS WITH MEALS
  8. VIMPAT [Concomitant]
     Active Substance: LACOSAMIDE
     Dosage: 200 MG BID
  9. CARBIGLU [Concomitant]
     Dosage: 11 DF TID

REACTIONS (4)
  - Status epilepticus [Unknown]
  - Encephalopathy [Unknown]
  - Ammonia increased [Unknown]
  - Pneumonia [Unknown]
